FAERS Safety Report 6344790-X (Version None)
Quarter: 2009Q3

REPORT INFORMATION
  Report Type: 
  Country: None (occurrence: None)
  Receive Date: 20090904
  Receipt Date: 20090819
  Transmission Date: 20100115
  Serious: Yes (Other)
  Sender: FDA-Public Use
  Company Number: 2008S1000390

PATIENT
  Age: 57 Year
  Sex: Female
  Weight: 67.1324 kg

DRUGS (11)
  1. PHOSPHOSODA GINGER LEMON [Suspect]
     Indication: COLONOSCOPY
     Dosage: 90 ML; TOTAL; PO
     Route: 048
     Dates: start: 20050925, end: 20050927
  2. REGLAN [Suspect]
     Indication: COLONOSCOPY
     Dosage: 20 MG; TOTAL; PO
     Route: 048
     Dates: start: 20050926, end: 20050926
  3. LISINOPRIL [Concomitant]
  4. HYDROCHLOROTHIAZIDE [Concomitant]
  5. ESTROGEN NOS [Concomitant]
  6. FOSAMAX [Concomitant]
  7. TRAZODONE [Concomitant]
  8. AMBIEN [Concomitant]
  9. IBUPROFEN [Concomitant]
  10. FENTANYL [Concomitant]
  11. MIDAZOLAM HCL [Concomitant]

REACTIONS (5)
  - ANAEMIA [None]
  - ASTHENIA [None]
  - DYSGEUSIA [None]
  - HYPOPHAGIA [None]
  - RENAL FAILURE ACUTE [None]
